FAERS Safety Report 23429960 (Version 2)
Quarter: 2024Q1

REPORT INFORMATION
  Report Type: Report from Study
  Country: NL (occurrence: NL)
  Receive Date: 20240122
  Receipt Date: 20240124
  Transmission Date: 20240410
  Serious: Yes (Hospitalization, Other)
  Sender: FDA-Public Use
  Company Number: NL-ABBVIE-5576790

PATIENT
  Sex: Female

DRUGS (9)
  1. REMICADE [Suspect]
     Active Substance: INFLIXIMAB
     Indication: Crohn^s disease
     Route: 042
     Dates: start: 2005, end: 2005
  2. STELARA [Suspect]
     Active Substance: USTEKINUMAB
     Indication: Product used for unknown indication
     Dosage: ROUTE OF ADMINISTRATION: INJECTION
     Route: 058
     Dates: start: 201908
  3. STELARA [Suspect]
     Active Substance: USTEKINUMAB
     Dosage: ROUTE OF ADMINISTRATION: INJECTION
     Route: 058
     Dates: start: 2020
  4. BUDESONIDE [Suspect]
     Active Substance: BUDESONIDE
     Indication: Stenosis
     Route: 065
     Dates: start: 2019
  5. AZATHIOPRINE [Suspect]
     Active Substance: AZATHIOPRINE
     Indication: Product used for unknown indication
     Route: 065
     Dates: start: 2014
  6. HUMIRA [Suspect]
     Active Substance: ADALIMUMAB
     Indication: Crohn^s disease
     Route: 058
     Dates: start: 2014, end: 2016
  7. PREDNISONE [Suspect]
     Active Substance: PREDNISONE
     Indication: Crohn^s disease
     Route: 065
     Dates: start: 2005
  8. PREDNISONE [Suspect]
     Active Substance: PREDNISONE
     Indication: Adrenocortical insufficiency acute
  9. METHOTREXATE [Suspect]
     Active Substance: METHOTREXATE
     Indication: Crohn^s disease
     Route: 065
     Dates: start: 2005

REACTIONS (16)
  - Acute kidney injury [Unknown]
  - Subileus [Unknown]
  - Abdominal pain [Unknown]
  - Ileal stenosis [Unknown]
  - Stenosis [Unknown]
  - Abdominal pain [Recovered/Resolved]
  - Drug intolerance [Unknown]
  - Drug ineffective [Unknown]
  - Drug hypersensitivity [Not Recovered/Not Resolved]
  - Faecal calprotectin increased [Unknown]
  - Crohn^s disease [Unknown]
  - Maternal exposure during pregnancy [Unknown]
  - Mental impairment [Unknown]
  - Sensory loss [Unknown]
  - Ileal stenosis [Unknown]
  - Abdominal pain [Unknown]

NARRATIVE: CASE EVENT DATE: 20140101
